FAERS Safety Report 4953559-X (Version None)
Quarter: 2006Q1

REPORT INFORMATION
  Report Type: 
  Country: None (occurrence: None)
  Receive Date: 20060324
  Receipt Date: 20050126
  Transmission Date: 20060701
  Serious: Yes (Hospitalization)
  Sender: FDA-Public Use
  Company Number: US-MERCK-0501USA04309

PATIENT
  Age: 59 Year
  Sex: Male
  Weight: 96 kg

DRUGS (2)
  1. VIOXX [Suspect]
     Indication: ARTHRALGIA
     Route: 048
  2. VIOXX [Suspect]
     Indication: MUSCULOSKELETAL STIFFNESS
     Route: 048

REACTIONS (3)
  - CARDIOVASCULAR DISORDER [None]
  - MYOCARDIAL INFARCTION [None]
  - VASCULAR INJURY [None]
